FAERS Safety Report 5444133-X (Version None)
Quarter: 2007Q3

REPORT INFORMATION
  Report Type: 
  Country: None (occurrence: None)
  Receive Date: 20070831
  Receipt Date: 20070829
  Transmission Date: 20080115
  Serious: Yes (Hospitalization)
  Sender: FDA-Public Use
  Company Number: GRT2007-13264

PATIENT
  Age: 51 Year
  Sex: Male
  Weight: 104 kg

DRUGS (9)
  1. LIDOCAINE [Suspect]
     Indication: NEURALGIA
     Dosage: 2 PATCHES A DAY
     Dates: start: 20070813, end: 20070816
  2. PREGABALIN [Suspect]
     Indication: NEURALGIA
     Dosage: 600MG/DAY
     Dates: start: 20070716, end: 20070816
  3. HUMALOG MIX [Concomitant]
  4. ALLOPURINOL [Concomitant]
  5. TRITACE [Concomitant]
  6. CITALOPRAM HYDROBROMIDE [Concomitant]
  7. XANAX [Concomitant]
  8. OXAZEPAM [Concomitant]
  9. ZOLPIDEM TARTRATE [Concomitant]

REACTIONS (5)
  - AGGRESSION [None]
  - CONDITION AGGRAVATED [None]
  - DEPRESSION [None]
  - SUICIDAL IDEATION [None]
  - VERBAL ABUSE [None]
